FAERS Safety Report 9846650 (Version 5)
Quarter: 2014Q1

REPORT INFORMATION
  Report Type: Report from Study
  Country: FR (occurrence: FR)
  Receive Date: 20140127
  Receipt Date: 20140226
  Transmission Date: 20141002
  Serious: No
  Sender: FDA-Public Use
  Company Number: FR-VIIV HEALTHCARE LIMITED-B0963375A

PATIENT
  Age: 50 Year
  Sex: Female
  Weight: 50 kg

DRUGS (5)
  1. DOLUTEGRAVIR [Suspect]
     Indication: HIV INFECTION
     Dosage: 50MG TWICE PER DAY
     Route: 048
     Dates: start: 20130104, end: 20130403
  2. TRUVADA [Suspect]
     Route: 048
     Dates: start: 20091007, end: 20130403
  3. NORVIR [Concomitant]
     Dosage: 100MG TWICE PER DAY
     Route: 048
     Dates: start: 20111128
  4. PREZISTA [Concomitant]
     Dosage: 800MG TWICE PER DAY
     Route: 048
     Dates: start: 20110819
  5. BACTRIM [Concomitant]
     Route: 048
     Dates: start: 20091007

REACTIONS (1)
  - Blood creatinine increased [Not Recovered/Not Resolved]
